FAERS Safety Report 7221431-0 (Version None)
Quarter: 2011Q1

REPORT INFORMATION
  Report Type: 
  Country: None (occurrence: None)
  Receive Date: 20110112
  Receipt Date: 20110104
  Transmission Date: 20110831
  Serious: Yes (Other)
  Sender: FDA-Public Use
  Company Number: CA-ELI_LILLY_AND_COMPANY-CA201011006764

PATIENT
  Age: 77 Year
  Sex: Female

DRUGS (6)
  1. PRAZOSIN HCL [Concomitant]
  2. SOTALOL HCL [Concomitant]
  3. FORTEO [Suspect]
     Indication: OSTEOPOROSIS
     Dosage: 20 UG, DAILY (1/D)
     Route: 058
     Dates: start: 20100824
  4. WARFARIN [Concomitant]
  5. DIOVAN [Concomitant]
  6. LIPITOR [Concomitant]

REACTIONS (1)
  - LABILE HYPERTENSION [None]
